FAERS Safety Report 5828160-6 (Version None)
Quarter: 2008Q3

REPORT INFORMATION
  Report Type: 
  Country: None (occurrence: None)
  Receive Date: 20080731
  Receipt Date: 20080714
  Transmission Date: 20090109
  Serious: Yes (Hospitalization)
  Sender: FDA-Public Use
  Company Number: IN-BRISTOL-MYERS SQUIBB COMPANY-14280440

PATIENT
  Age: 58 Year
  Sex: Male
  Weight: 96 kg

DRUGS (6)
  1. METFORMIN HCL [Suspect]
     Indication: DIABETES MELLITUS
     Route: 048
     Dates: start: 20080409, end: 20080712
  2. BLINDED: LIRAGLUTIDE [Suspect]
     Indication: DIABETES MELLITUS
     Dates: start: 20080409, end: 20080711
  3. BLINDED: GLIMEPIRIDE [Suspect]
     Indication: DIABETES MELLITUS
     Dates: start: 20080409, end: 20080712
  4. BLINDED: PLACEBO [Suspect]
     Indication: DIABETES MELLITUS
     Route: 048
     Dates: start: 20080409, end: 20080711
  5. MIXTARD HUMAN 70/30 [Concomitant]
     Dosage: 1 DF= 30 (UNITS NOT SPECIFIED) SUSPENSION FOR INJECTION
     Dates: start: 20080716
  6. RAMIPRIL [Concomitant]
     Dates: start: 20070324

REACTIONS (1)
  - VARICES OESOPHAGEAL [None]
